FAERS Safety Report 10563704 (Version 3)
Quarter: 2016Q1

REPORT INFORMATION
  Report Type: Spontaneous
  Country: US (occurrence: US)
  Receive Date: 20141104
  Receipt Date: 20160118
  Transmission Date: 20160525
  Serious: Yes (Hospitalization)
  Sender: FDA-Public Use
  Company Number: US-MALLINCKRODT-T201403877

PATIENT
  Sex: Male

DRUGS (4)
  1. GABLOFEN [Suspect]
     Active Substance: BACLOFEN
     Dosage: 500 MCG/ML (TITRATION)
     Dates: start: 201406
  2. GABLOFEN [Suspect]
     Active Substance: BACLOFEN
     Indication: MUSCLE SPASTICITY
     Dosage: 1000 MCG/ML AT 499.5 MCG/DAY
     Route: 037
  3. GABLOFEN [Suspect]
     Active Substance: BACLOFEN
     Dosage: UNK
     Dates: start: 20151114
  4. GABLOFEN [Suspect]
     Active Substance: BACLOFEN
     Dosage: 1000 MCG/ML (TITRATION)
     Route: 037
     Dates: start: 20140905

REACTIONS (2)
  - Immune thrombocytopenic purpura [Unknown]
  - Rectal haemorrhage [Unknown]
